FAERS Safety Report 6946468 (Version 24)
Quarter: 2014Q1

REPORT INFORMATION
  Report Type: Spontaneous
  Country: US (occurrence: US)
  Receive Date: 20090320
  Receipt Date: 20140101
  Transmission Date: 20141002
  Serious: Yes (Disabling, Other)
  Sender: FDA-Public Use
  Company Number: PHEH2009US02599

PATIENT
  Sex: Male

DRUGS (5)
  1. RITALIN [Suspect]
     Indication: ATTENTION DEFICIT/HYPERACTIVITY DISORDER
     Dosage: 10 MG, QD
     Dates: start: 1965, end: 1975
  2. RITALIN [Suspect]
     Dosage: 600 MG, BID
  3. ZYPREXA [Suspect]
     Dosage: UNK UKN, UNK
  4. LITHIUM [Concomitant]
     Dosage: 600 MG, BID
  5. BENADRYL [Concomitant]
     Indication: SLEEP DISORDER
     Dosage: 50 MG, QD
     Route: 048

REACTIONS (13)
  - Learning disability [Not Recovered/Not Resolved]
  - Bipolar disorder [Unknown]
  - Psychopathic personality [Unknown]
  - Incoherent [Unknown]
  - Crying [Unknown]
  - Depressed mood [Unknown]
  - Suicidal behaviour [Unknown]
  - Mental disorder [Unknown]
  - Brain injury [Unknown]
  - Mood swings [Recovered/Resolved]
  - Feeling abnormal [Unknown]
  - Hypertension [Unknown]
  - Insomnia [Unknown]
